FAERS Safety Report 6499095-3 (Version None)
Quarter: 2009Q4

REPORT INFORMATION
  Report Type: 
  Country: None (occurrence: None)
  Receive Date: 20091127
  Receipt Date: 20081105
  Transmission Date: 20100525
  Serious: Yes (Disabling)
  Sender: FDA-Public Use
  Company Number: WAES 0801USA05458

PATIENT
  Age: 53 Year
  Sex: Female
  Weight: 48.9885 kg

DRUGS (3)
  1. FOSAMAX [Suspect]
     Indication: OSTEOPOROSIS
     Dosage: 70 MG/PO
     Route: 048
     Dates: start: 20050207, end: 20060613
  2. ACIPHEX [Concomitant]
  3. HORMONES (UNSPECIFIED ) [Concomitant]

REACTIONS (6)
  - CHEST PAIN [None]
  - DYSPNOEA [None]
  - IMPAIRED HEALING [None]
  - MOUTH ULCERATION [None]
  - ORAL INFECTION [None]
  - OSTEONECROSIS [None]
